FAERS Safety Report 19194364 (Version 1)
Quarter: 2021Q2

REPORT INFORMATION
  Report Type: Spontaneous
  Country: US (occurrence: US)
  Receive Date: 20210429
  Receipt Date: 20210429
  Transmission Date: 20210717
  Serious: Yes (Hospitalization)
  Sender: FDA-Public Use
  Company Number: None

PATIENT
  Age: 65 Year
  Sex: Female
  Weight: 58.6 kg

DRUGS (2)
  1. GEMCITABINE HYDROCHLORIDE. [Suspect]
     Active Substance: GEMCITABINE HYDROCHLORIDE
     Dates: end: 20190730
  2. CISPLATIN. [Suspect]
     Active Substance: CISPLATIN
     Dates: end: 20190730

REACTIONS (11)
  - Hypokalaemia [None]
  - Thrombocytopenia [None]
  - Pneumonia [None]
  - Acute kidney injury [None]
  - Neutropenia [None]
  - Hypotension [None]
  - Pancytopenia [None]
  - Sinus tachycardia [None]
  - Diarrhoea [None]
  - Bradycardia [None]
  - Atrioventricular block second degree [None]

NARRATIVE: CASE EVENT DATE: 20190805
